FAERS Safety Report 19071149 (Version 3)
Quarter: 2021Q2

REPORT INFORMATION
  Report Type: Spontaneous
  Country: SI (occurrence: SI)
  Receive Date: 20210330
  Receipt Date: 20210414
  Transmission Date: 20210717
  Serious: Yes (Hospitalization, Other)
  Sender: FDA-Public Use
  Company Number: SI-JNJFOC-20210349013

PATIENT
  Age: 46 Year
  Sex: Male

DRUGS (12)
  1. ETORICOXIB. [Concomitant]
     Active Substance: ETORICOXIB
     Indication: GOUT
  2. RIVAROXABAN [Suspect]
     Active Substance: RIVAROXABAN
     Indication: PULMONARY EMBOLISM
     Dosage: 15 MG, BID
     Route: 048
     Dates: start: 202009
  3. RIMAPEN [RIFAMPICIN] [Concomitant]
     Indication: PLEOCYTOSIS
     Dosage: UNK
     Dates: start: 2020, end: 202009
  4. ACETYLSALICYLIC ACID [Suspect]
     Active Substance: ASPIRIN
     Indication: PRODUCT USED FOR UNKNOWN INDICATION
     Dosage: 100 MG
     Route: 065
     Dates: end: 202009
  5. DOXICICLIN [Concomitant]
     Indication: PLEOCYTOSIS
     Dosage: UNK
     Dates: end: 202009
  6. RIVAROXABAN [Suspect]
     Active Substance: RIVAROXABAN
     Indication: DEEP VEIN THROMBOSIS
  7. DOXICICLIN [Concomitant]
     Indication: JOINT SWELLING
     Dosage: UNK
     Dates: start: 202012
  8. CEFTRIAXON [Concomitant]
     Active Substance: CEFTRIAXONE
     Indication: PLEOCYTOSIS
     Dosage: UNK
     Dates: start: 2020, end: 202009
  9. DALTEPARIN [Concomitant]
     Active Substance: DALTEPARIN
     Dosage: UNK
     Dates: end: 202009
  10. BISOPROLOL [Concomitant]
     Active Substance: BISOPROLOL
  11. LISINOPRIL. [Concomitant]
     Active Substance: LISINOPRIL
  12. PANTOPRAZOLE [Concomitant]
     Active Substance: PANTOPRAZOLE
     Dosage: UNK, PRN

REACTIONS (6)
  - Synovitis [Recovering/Resolving]
  - Peripheral swelling [Unknown]
  - Anaemia [Unknown]
  - General physical health deterioration [Recovering/Resolving]
  - Pain in extremity [Unknown]
  - Joint swelling [Recovering/Resolving]

NARRATIVE: CASE EVENT DATE: 202009
